FAERS Safety Report 13780297 (Version 1)
Quarter: 2017Q3

REPORT INFORMATION
  Report Type: Other
  Country: US (occurrence: US)
  Receive Date: 20170724
  Receipt Date: 20170724
  Transmission Date: 20171127
  Serious: Yes (Death)
  Sender: FDA-Public Use
  Company Number: US-ORCHID HEALTHCARE-2023657

PATIENT
  Age: 53 Year
  Sex: Male

DRUGS (1)
  1. AMLODIPINE BESYLATE. [Suspect]
     Active Substance: AMLODIPINE BESYLATE
     Route: 048

REACTIONS (12)
  - Mental status changes [Unknown]
  - Drug level above therapeutic [Unknown]
  - Brain injury [Fatal]
  - Acute kidney injury [Unknown]
  - Pulseless electrical activity [Fatal]
  - Hypotension [Fatal]
  - Cardiac arrest [Fatal]
  - Overdose [Fatal]
  - Hyperhidrosis [Unknown]
  - Brain death [Fatal]
  - Bradycardia [Unknown]
  - Completed suicide [Fatal]
